FAERS Safety Report 16696091 (Version 2)
Quarter: 2019Q3

REPORT INFORMATION
  Report Type: Spontaneous
  Country: SK (occurrence: SK)
  Receive Date: 20190813
  Receipt Date: 20190816
  Transmission Date: 20191004
  Serious: Yes (Life-Threatening, Disabling, Other)
  Sender: FDA-Public Use
  Company Number: SK-LUPIN PHARMACEUTICALS INC.-2019-04058

PATIENT
  Age: 50 Year
  Sex: Male

DRUGS (6)
  1. ZOLPIDEM [Suspect]
     Active Substance: ZOLPIDEM TARTRATE
     Indication: ANXIETY
     Dosage: 60 MILLIGRAM, QD
     Route: 048
  2. ZOLPIDEM [Suspect]
     Active Substance: ZOLPIDEM TARTRATE
     Indication: DEPRESSION
     Dosage: UNK
     Route: 048
  3. ALPRAZOLAM. [Suspect]
     Active Substance: ALPRAZOLAM
     Indication: ANXIETY
     Dosage: UNK
     Route: 065
  4. TIANEPTINE [Suspect]
     Active Substance: TIANEPTINE
     Indication: DEPRESSION
     Dosage: UNK
     Route: 048
  5. TIANEPTINE [Suspect]
     Active Substance: TIANEPTINE
     Indication: ANXIETY
     Dosage: UNK
     Route: 048
  6. ALPRAZOLAM. [Suspect]
     Active Substance: ALPRAZOLAM
     Indication: DEPRESSION
     Dosage: 0.25 MILLIGRAM, QD
     Route: 048

REACTIONS (21)
  - Decreased appetite [Recovered/Resolved]
  - Abulia [Recovered/Resolved]
  - Depression [Recovered/Resolved]
  - Irritability [Recovered/Resolved]
  - Depressed mood [Recovered/Resolved]
  - Feeling abnormal [Recovered/Resolved]
  - Psychotic disorder [Recovered/Resolved]
  - Suicidal ideation [Recovered/Resolved]
  - Weight decreased [Recovered/Resolved]
  - Amimia [Recovered/Resolved]
  - Bradyphrenia [Recovered/Resolved]
  - Reduced facial expression [Recovered/Resolved]
  - Bradykinesia [Recovered/Resolved]
  - Tension [Recovered/Resolved]
  - Insomnia [Recovered/Resolved]
  - Drug ineffective [Unknown]
  - Thinking abnormal [Recovered/Resolved]
  - Dyssomnia [Recovered/Resolved]
  - Asthenia [Recovered/Resolved]
  - Anhedonia [Recovered/Resolved]
  - Anxiety [Recovered/Resolved]
